FAERS Safety Report 6910566-5 (Version None)
Quarter: 2010Q3

REPORT INFORMATION
  Report Type: 
  Country: None (occurrence: None)
  Receive Date: 20100806
  Receipt Date: 20100726
  Transmission Date: 20110219
  Serious: Yes (Life-Threatening, Other)
  Sender: FDA-Public Use
  Company Number: BR-PFIZER INC-2010093402

PATIENT
  Age: 37 Year
  Sex: Female

DRUGS (4)
  1. FRONTAL [Suspect]
     Indication: DEPRESSION
     Route: 048
  2. PRIMOLUT-NOR [Suspect]
     Indication: VAGINAL HAEMORRHAGE
     Dosage: UNK, 1X/DAY
     Route: 048
     Dates: start: 20080101
  3. PRIMOLUT-NOR [Suspect]
     Dosage: UNK, 1X/DAY
     Route: 048
     Dates: start: 20100619
  4. CLONAZEPAM [Concomitant]
     Indication: DEPRESSION
     Dosage: 2MG, UNKNOWN FREQUENCY
     Route: 048
     Dates: start: 20000101

REACTIONS (6)
  - ABDOMINAL DISTENSION [None]
  - AGITATION [None]
  - DYSPHONIA [None]
  - FEELING COLD [None]
  - NERVOUSNESS [None]
  - SUICIDAL IDEATION [None]
